FAERS Safety Report 9983471 (Version 8)
Quarter: 2016Q1

REPORT INFORMATION
  Report Type: Report from Study
  Country: US (occurrence: US)
  Receive Date: 20140307
  Receipt Date: 20160217
  Transmission Date: 20160526
  Serious: Yes (Hospitalization, Other)
  Sender: FDA-Public Use
  Company Number: US-SA-2014SA025372

PATIENT
  Age: 54 Year
  Sex: Male

DRUGS (12)
  1. ZANTAC [Concomitant]
     Active Substance: RANITIDINE HYDROCHLORIDE
  2. FLOMAX [Concomitant]
     Active Substance: TAMSULOSIN HYDROCHLORIDE
  3. AUBAGIO [Suspect]
     Active Substance: TERIFLUNOMIDE
     Indication: MULTIPLE SCLEROSIS
     Route: 048
     Dates: start: 20131113
  4. LIPITOR [Concomitant]
     Active Substance: ATORVASTATIN CALCIUM
  5. VITAMIN D [Concomitant]
     Active Substance: CHOLECALCIFEROL
     Dosage: DOSE:1000 UNIT(S)
  6. QUINAPRIL [Concomitant]
     Active Substance: QUINAPRIL\QUINAPRIL HYDROCHLORIDE
  7. AMITRIPTYLINE HYDROCHLORIDE. [Concomitant]
     Active Substance: AMITRIPTYLINE HYDROCHLORIDE
  8. VITAMIN E [Concomitant]
     Active Substance: .ALPHA.-TOCOPHEROL
     Dosage: DOSE:1000 UNIT(S)
  9. GARLIC. [Concomitant]
     Active Substance: GARLIC
  10. CRANBERRY EXTRACT [Concomitant]
     Active Substance: CRANBERRY JUICE
  11. CHONDROITIN W/GLUCOSAMINE [Concomitant]
  12. COREG [Concomitant]
     Active Substance: CARVEDILOL

REACTIONS (15)
  - Joint swelling [Recovered/Resolved]
  - Tibia fracture [Recovered/Resolved]
  - Bunion operation [Unknown]
  - Rhinorrhoea [Unknown]
  - Diarrhoea [Recovered/Resolved]
  - Drug dose omission [Unknown]
  - Asthenia [Recovering/Resolving]
  - Localised infection [Recovered/Resolved]
  - Postoperative wound infection [Recovered/Resolved]
  - Fatigue [Unknown]
  - Balance disorder [Recovering/Resolving]
  - Ankle fracture [Recovered/Resolved]
  - Tendon rupture [Recovered/Resolved]
  - Fall [Unknown]
  - Asthenia [Recovered/Resolved]

NARRATIVE: CASE EVENT DATE: 20140221
